FAERS Safety Report 9825219 (Version 1)
Quarter: 2014Q1

REPORT INFORMATION
  Report Type: Report from Study
  Country: US (occurrence: US)
  Receive Date: 20140117
  Receipt Date: 20140117
  Transmission Date: 20141002
  Serious: No
  Sender: FDA-Public Use
  Company Number: PHEH2014US000910

PATIENT
  Sex: Male

DRUGS (16)
  1. TASIGNA [Suspect]
     Indication: CHRONIC MYELOID LEUKAEMIA
     Dosage: 150 MG, BID
     Route: 048
     Dates: start: 201304
  2. KLONOPIN [Concomitant]
     Dosage: UNK UKN, UNK
  3. NITRO-DUR [Concomitant]
     Dosage: 0.4 MG/H, UNK
     Route: 062
  4. TAMSULOSIN [Concomitant]
     Dosage: UNK UKN, UNK
  5. LISINOPRIL [Concomitant]
     Dosage: UNK UKN, UNK
  6. ASPIRIN [Concomitant]
     Dosage: 81 MG, UNK
  7. DILT CD [Concomitant]
     Dosage: UNK UKN, UNK
  8. FUROSEMIDE [Concomitant]
     Dosage: UNK UKN, UNK
  9. LIPITOR [Concomitant]
     Dosage: UNK UKN, UNK
  10. TERAZOSIN [Concomitant]
     Dosage: UNK UKN, UNK
  11. AMIODARONE [Concomitant]
     Dosage: UNK UKN, UNK
  12. CETRIZINE [Concomitant]
     Dosage: UNK UKN, UNK
  13. METOPROLOL TARTRATE [Concomitant]
     Dosage: UNK UKN, UNK
  14. POTASSIUM CHLORIDE [Concomitant]
     Dosage: UNK UKN, UNK
  15. MIRALAX [Concomitant]
     Dosage: UNK UKN, UNK
  16. PLAVIX [Concomitant]
     Dosage: UNK UKN, UNK

REACTIONS (3)
  - Nausea [Unknown]
  - Vomiting [Unknown]
  - Diarrhoea [Unknown]
